FAERS Safety Report 12206702 (Version 1)
Quarter: 2016Q1

REPORT INFORMATION
  Report Type: Spontaneous
  Country: US (occurrence: US)
  Receive Date: 20160324
  Receipt Date: 20160324
  Transmission Date: 20160526
  Serious: No
  Sender: FDA-Public Use
  Company Number: US-BAYER-2016-045934

PATIENT
  Sex: Female

DRUGS (1)
  1. ALEVE [Suspect]
     Active Substance: NAPROXEN SODIUM
     Indication: PAIN
     Dosage: UNK

REACTIONS (7)
  - Stomatitis [None]
  - Drug ineffective for unapproved indication [None]
  - Product taste abnormal [None]
  - Glossodynia [None]
  - Product use issue [None]
  - Dysphagia [None]
  - Oral discomfort [None]
